FAERS Safety Report 21050253 (Version 1)
Quarter: 2022Q3

REPORT INFORMATION
  Report Type: Report from Study
  Country: GT (occurrence: GT)
  Receive Date: 20220706
  Receipt Date: 20220706
  Transmission Date: 20221027
  Serious: Yes (Other)
  Sender: FDA-Public Use
  Company Number: GT-NOVARTISPH-NVSC2022GT150376

PATIENT
  Age: 67 Year
  Sex: Male

DRUGS (1)
  1. EXFORGE [Suspect]
     Active Substance: AMLODIPINE BESYLATE\VALSARTAN
     Indication: Product used for unknown indication
     Dosage: UNK, STARTED APPROXIMATELY LESS THAN 1 YEAR AGO
     Route: 065

REACTIONS (5)
  - Angina pectoris [Unknown]
  - Movement disorder [Unknown]
  - Hypertension [Unknown]
  - Arthralgia [Unknown]
  - Headache [Unknown]
